FAERS Safety Report 10064952 (Version 5)
Quarter: 2014Q2

REPORT INFORMATION
  Report Type: Spontaneous
  Country: JP (occurrence: JP)
  Receive Date: 20140408
  Receipt Date: 20140502
  Transmission Date: 20141212
  Serious: Yes (Hospitalization)
  Sender: FDA-Public Use
  Company Number: JP-ROCHE-1373778

PATIENT
  Age: 78 Year
  Sex: Female
  Weight: 70 kg

DRUGS (12)
  1. TAMIFLU [Suspect]
     Indication: INFLUENZA
     Route: 048
     Dates: start: 20140317, end: 20140321
  2. PONTAL [Concomitant]
     Dosage: DOSAGE IS UNCERTAIN.
     Route: 048
     Dates: start: 20140320
  3. MUCODYNE [Concomitant]
     Dosage: DOSAGE IS UNCERTAIN.
     Route: 048
     Dates: start: 20140320
  4. NOZLEN [Concomitant]
     Dosage: DOSAGE IS UNCERTAIN.
     Route: 048
  5. PYRINAZIN (JAPAN) [Concomitant]
     Dosage: DOSAGE IS UNCERTAIN.
     Route: 048
     Dates: start: 20140320
  6. MEDICON [Concomitant]
     Dosage: DOSAGE IS UNCERTAIN.
     Route: 048
     Dates: start: 20140320
  7. NU-LOTAN [Concomitant]
     Dosage: DOSAGE IS UNCERTAIN.
     Route: 048
  8. DEPAS [Concomitant]
     Dosage: DOSAGE IS UNCERTAIN.
     Route: 048
  9. EPADEL [Concomitant]
     Dosage: DOSAGE IS UNCERTAIN.
     Route: 048
  10. GASTER (JAPAN) [Concomitant]
     Dosage: DOSAGE IS UNCERTAIN.
     Route: 065
  11. MUCOSTA [Concomitant]
     Dosage: DOSAGE IS UNCERTAIN.
     Route: 065
  12. MERISLON [Concomitant]
     Dosage: DOSAGE IS UNCERTAIN.
     Route: 048

REACTIONS (4)
  - Oedema [Recovered/Resolved]
  - Dysstasia [Unknown]
  - C-reactive protein increased [Recovered/Resolved]
  - Arthralgia [Unknown]
